FAERS Safety Report 9215631 (Version 1)
Quarter: 2013Q2

REPORT INFORMATION
  Report Type: Spontaneous
  Country: CN (occurrence: CN)
  Receive Date: 20130408
  Receipt Date: 20130408
  Transmission Date: 20140414
  Serious: Yes (Hospitalization)
  Sender: FDA-Public Use
  Company Number: CN-PFIZER INC-2013097064

PATIENT
  Age: 42 Year
  Sex: Male

DRUGS (4)
  1. DIFLUCAN [Suspect]
     Indication: PNEUMONIA CRYPTOCOCCAL
     Dosage: 0.4 G, DAILY
     Route: 048
     Dates: start: 201111, end: 201211
  2. DIFLUCAN [Suspect]
     Indication: PNEUMONIA CRYPTOCOCCAL
     Dosage: 0.4 G, DAILY
     Route: 042
     Dates: start: 201111, end: 201211
  3. CEFOTIAM [Concomitant]
     Dosage: UNK
     Dates: start: 20120925, end: 20121001
  4. AZITHROMYCIN [Concomitant]
     Dosage: UNK
     Dates: start: 20120925, end: 20121001

REACTIONS (3)
  - Oedema peripheral [Not Recovered/Not Resolved]
  - Cough [Unknown]
  - Generalised oedema [Not Recovered/Not Resolved]
